FAERS Safety Report 4565585-3 (Version None)
Quarter: 2005Q1

REPORT INFORMATION
  Report Type: 
  Country: None (occurrence: None)
  Receive Date: 20050126
  Receipt Date: 20050107
  Transmission Date: 20050727
  Serious: Yes (Other)
  Sender: FDA-Public Use
  Company Number: USA050187800

PATIENT
  Age: 84 Year
  Sex: Female

DRUGS (7)
  1. FORTEO [Suspect]
     Indication: OSTEOPOROSIS
  2. DANAZOL [Concomitant]
  3. PREDNISONE [Concomitant]
  4. SPIRONOLACTONE [Concomitant]
  5. FOLIC ACID [Concomitant]
  6. LASIX [Concomitant]
  7. PREVACID [Concomitant]

REACTIONS (2)
  - CONDITION AGGRAVATED [None]
  - HAEMOLYTIC ANAEMIA [None]
